FAERS Safety Report 16567634 (Version 1)
Quarter: 2019Q3

REPORT INFORMATION
  Report Type: Spontaneous
  Country: GB (occurrence: GB)
  Receive Date: 20190712
  Receipt Date: 20190712
  Transmission Date: 20191004
  Serious: Yes (Other)
  Sender: FDA-Public Use
  Company Number: GB-MYLANLABS-2019M1064811

PATIENT
  Age: 55 Year
  Sex: Male

DRUGS (1)
  1. TIMOLOL. [Suspect]
     Active Substance: TIMOLOL
     Indication: OCULAR HYPERTENSION
     Dosage: UNK

REACTIONS (2)
  - Peyronie^s disease [Unknown]
  - Dupuytren^s contracture [Unknown]
